FAERS Safety Report 9332334 (Version 1)
Quarter: 2013Q2

REPORT INFORMATION
  Report Type: Spontaneous
  Country: AU (occurrence: AU)
  Receive Date: 20130606
  Receipt Date: 20130606
  Transmission Date: 20140414
  Serious: Yes (Other)
  Sender: FDA-Public Use
  Company Number: AU-009507513-1306AUS001023

PATIENT
  Sex: Female

DRUGS (3)
  1. NITROGLYCERIN [Suspect]
  2. COVERAM [Suspect]
  3. PRADAXA [Suspect]

REACTIONS (1)
  - Cerebrovascular accident [Unknown]
